FAERS Safety Report 10461467 (Version 1)
Quarter: 2014Q3

REPORT INFORMATION
  Report Type: Report from Study
  Country: US (occurrence: US)
  Receive Date: 20140918
  Receipt Date: 20140918
  Transmission Date: 20150326
  Serious: Yes (Other)
  Sender: FDA-Public Use
  Company Number: US-JNJFOC-20140911197

PATIENT
  Sex: Female

DRUGS (1)
  1. TOPAMAX [Suspect]
     Active Substance: TOPIRAMATE
     Indication: PRODUCT USED FOR UNKNOWN INDICATION
     Route: 048

REACTIONS (25)
  - Hallucination, auditory [Unknown]
  - Depression [Unknown]
  - Posture abnormal [Unknown]
  - Muscle spasms [Unknown]
  - Musculoskeletal pain [Unknown]
  - Ovarian cyst [Unknown]
  - Constipation [Unknown]
  - Post-traumatic stress disorder [Unknown]
  - Temporomandibular joint syndrome [Unknown]
  - Urinary retention [Unknown]
  - Pain [Unknown]
  - Musculoskeletal chest pain [Unknown]
  - Polyarthritis [Unknown]
  - Pain in extremity [Unknown]
  - Vitamin D deficiency [Unknown]
  - Tobacco abuse [Unknown]
  - Urge incontinence [Unknown]
  - Alopecia [Unknown]
  - Fatigue [Unknown]
  - Neck pain [Unknown]
  - Gait disturbance [Unknown]
  - Paraesthesia [Unknown]
  - Multiple sclerosis relapse [Unknown]
  - Limb injury [Unknown]
  - Affective disorder [Unknown]
